FAERS Safety Report 15395805 (Version 1)
Quarter: 2018Q3

REPORT INFORMATION
  Report Type: Spontaneous
  Country: US (occurrence: US)
  Receive Date: 20180912
  Receipt Date: 20180912
  Transmission Date: 20181010
  Serious: Yes (Life-Threatening, Hospitalization)
  Sender: FDA-Public Use
  Company Number: None

PATIENT
  Age: 26 Year
  Sex: Female
  Weight: 67.95 kg

DRUGS (1)
  1. CELEBREX [Suspect]
     Active Substance: CELECOXIB
     Indication: DENTAL OPERATION
     Route: 048
     Dates: start: 20180910, end: 20180911

REACTIONS (5)
  - Stevens-Johnson syndrome [None]
  - Rash [None]
  - Blister [None]
  - Skin burning sensation [None]
  - Lip exfoliation [None]

NARRATIVE: CASE EVENT DATE: 20180911
